FAERS Safety Report 13574677 (Version 3)
Quarter: 2018Q1

REPORT INFORMATION
  Report Type: Report from Study
  Country: US (occurrence: US)
  Receive Date: 20170523
  Receipt Date: 20180117
  Transmission Date: 20180508
  Serious: Yes (Hospitalization)
  Sender: FDA-Public Use
  Company Number: US-ACTELION-A-NJ2017-154054

PATIENT
  Age: 78 Year
  Sex: Female

DRUGS (10)
  1. MAGNESIUM [Concomitant]
     Active Substance: MAGNESIUM
     Dosage: 250 MG, UNK
  2. PREDNISONE. [Concomitant]
     Active Substance: PREDNISONE
  3. ZITHROMAX [Concomitant]
     Active Substance: AZITHROMYCIN DIHYDRATE
     Dosage: 600 MG, UNK
  4. MEDROL [Concomitant]
     Active Substance: METHYLPREDNISOLONE
  5. SINGULAIR [Concomitant]
     Active Substance: MONTELUKAST SODIUM
  6. TESSALON [Concomitant]
     Active Substance: BENZONATATE
  7. ALDACTONE [Concomitant]
     Active Substance: SPIRONOLACTONE
  8. DEXAMETHASONE. [Concomitant]
     Active Substance: DEXAMETHASONE
  9. OPSUMIT [Suspect]
     Active Substance: MACITENTAN
     Indication: PULMONARY ARTERIAL HYPERTENSION
     Dosage: 10 MG, UNK
     Route: 048
     Dates: start: 20170907
  10. POTASSIUM [Concomitant]
     Active Substance: POTASSIUM
     Dosage: 25 MEQ, UNK

REACTIONS (6)
  - Asthenia [Unknown]
  - Respiratory failure [Unknown]
  - Pneumonia [Unknown]
  - Feeling abnormal [Unknown]
  - Idiopathic pulmonary fibrosis [Unknown]
  - Dyspnoea [Unknown]

NARRATIVE: CASE EVENT DATE: 20171110
